FAERS Safety Report 10185239 (Version 2)
Quarter: 2014Q3

REPORT INFORMATION
  Report Type: Spontaneous
  Country: JP (occurrence: JP)
  Receive Date: 20140521
  Receipt Date: 20140711
  Transmission Date: 20150326
  Serious: Yes (Life-Threatening, Hospitalization)
  Sender: FDA-Public Use
  Company Number: JP-MYLANLABS-2014S1010998

PATIENT
  Age: 64 Year
  Sex: Female
  Weight: 43 kg

DRUGS (9)
  1. GASTER [Concomitant]
     Active Substance: FAMOTIDINE
     Indication: ANTIALLERGIC THERAPY
     Dosage: TOTAL DOSE 20MG
     Route: 042
     Dates: start: 20140416, end: 20140416
  2. RESTAMIN /00000402/ [Concomitant]
     Indication: ANTIALLERGIC THERAPY
     Route: 048
     Dates: start: 20140416, end: 20140416
  3. DEXART [Concomitant]
     Active Substance: DEXAMETHASONE SODIUM PHOSPHATE
     Indication: ANTIALLERGIC THERAPY
     Dosage: TOTAL DOSE 16.5MG
     Route: 042
     Dates: start: 20140416, end: 20140416
  4. ALOXI [Concomitant]
     Active Substance: PALONOSETRON HYDROCHLORIDE
     Indication: PROPHYLAXIS OF NAUSEA AND VOMITING
     Dosage: TOTAL DOSE 0.75MG
     Route: 042
     Dates: start: 20140416, end: 20140416
  5. CARBOPLATIN. [Suspect]
     Active Substance: CARBOPLATIN
     Indication: UTERINE CANCER
     Route: 041
     Dates: start: 20140416
  6. EMEND [Concomitant]
     Active Substance: APREPITANT
     Indication: PROPHYLAXIS OF NAUSEA AND VOMITING
     Dosage: TOTAL DOSE 160MG
     Route: 048
     Dates: start: 20140417, end: 20140418
  7. EPIRUBICIN [Suspect]
     Active Substance: EPIRUBICIN
     Indication: UTERINE CANCER
     Route: 041
     Dates: start: 20140416
  8. EMEND [Concomitant]
     Active Substance: APREPITANT
     Indication: PROPHYLAXIS OF NAUSEA AND VOMITING
     Route: 048
     Dates: start: 20140416, end: 20140416
  9. TAXOL [Suspect]
     Active Substance: PACLITAXEL
     Indication: UTERINE CANCER
     Route: 041
     Dates: start: 20140416

REACTIONS (4)
  - Cardio-respiratory arrest [Recovered/Resolved with Sequelae]
  - Febrile neutropenia [Recovered/Resolved]
  - Hypoxic-ischaemic encephalopathy [Unknown]
  - Pneumonia [Recovering/Resolving]

NARRATIVE: CASE EVENT DATE: 20140430
